FAERS Safety Report 11783218 (Version 3)
Quarter: 2015Q4

REPORT INFORMATION
  Report Type: Report from Study
  Country: CA (occurrence: CA)
  Receive Date: 20151127
  Receipt Date: 20151224
  Transmission Date: 20160305
  Serious: Yes (Other)
  Sender: FDA-Public Use
  Company Number: PHHY2013CA109031

PATIENT
  Age: 57 Year
  Sex: Male
  Weight: 88 kg

DRUGS (3)
  1. SANDOSTATIN LAR DEPOT [Suspect]
     Active Substance: OCTREOTIDE ACETATE
     Indication: NEUROENDOCRINE CARCINOMA
     Dosage: 30 MG, QMO, EVERY 4 WEEKS
     Route: 030
     Dates: start: 20130415
  2. LUTETIUM (LU 177) [Concomitant]
     Active Substance: LUTETIUM LU-177
     Indication: PRODUCT USED FOR UNKNOWN INDICATION
     Dosage: UNK
     Route: 065
     Dates: start: 20151109
  3. SANDOSTATIN LAR DEPOT [Suspect]
     Active Substance: OCTREOTIDE ACETATE
     Dosage: 60 MG, QMO (Q 28 DAYS)
     Route: 030
     Dates: start: 20151123

REACTIONS (13)
  - Gastrointestinal disorder [Unknown]
  - Headache [Recovered/Resolved]
  - Abdominal pain [Unknown]
  - Malaise [Unknown]
  - Vomiting [Unknown]
  - Weight decreased [Unknown]
  - Hormone level abnormal [Unknown]
  - Muscle spasms [Unknown]
  - Drug ineffective [Unknown]
  - Nausea [Unknown]
  - Neoplasm [Unknown]
  - Decreased appetite [Recovered/Resolved]
  - Feeding disorder [Unknown]

NARRATIVE: CASE EVENT DATE: 201307
